FAERS Safety Report 5953385-9 (Version None)
Quarter: 2008Q4

REPORT INFORMATION
  Report Type: 
  Country: None (occurrence: None)
  Receive Date: 20081114
  Receipt Date: 20080818
  Transmission Date: 20090506
  Serious: No
  Sender: FDA-Public Use
  Company Number: US-BRISTOL-MYERS SQUIBB COMPANY-14306575

PATIENT
  Age: 64 Year
  Sex: Male
  Weight: 83 kg

DRUGS (3)
  1. CAPOZIDE 25/15 [Suspect]
     Indication: HYPERTENSION
     Dosage: 3 DOSAGEFORM = 3 TABS
     Route: 048
     Dates: start: 20080808
  2. PRILOSEC [Concomitant]
  3. POTASSIUM CHLORIDE [Concomitant]

REACTIONS (1)
  - HYPERTENSION [None]
